FAERS Safety Report 25023785 (Version 1)
Quarter: 2025Q1

REPORT INFORMATION
  Report Type: Spontaneous
  Country: US (occurrence: US)
  Receive Date: 20250228
  Receipt Date: 20250228
  Transmission Date: 20250408
  Serious: No
  Sender: VERTEX
  Company Number: US-VERTEX PHARMACEUTICALS-2025-002769

PATIENT
  Sex: Male

DRUGS (3)
  1. TRIKAFTA [Suspect]
     Active Substance: ELEXACAFTOR\IVACAFTOR\TEZACAFTOR
     Indication: Cystic fibrosis
     Dosage: TWO ORANGE TABLETS IN THE MORNING AND ONE BLUE TABLET IN THE EVENING
     Route: 048
     Dates: start: 20241119
  2. PULMOZYME [Suspect]
     Active Substance: DORNASE ALFA
     Indication: Cystic fibrosis lung
     Dosage: UNK, BID
     Dates: start: 20171205
  3. CAYSTON [Suspect]
     Active Substance: AZTREONAM
     Indication: Cystic fibrosis lung
     Dosage: 75 MILLIGRAM, TID
     Dates: start: 20210316

REACTIONS (1)
  - Visual impairment [Not Recovered/Not Resolved]
